FAERS Safety Report 8399367-1 (Version None)
Quarter: 2012Q2

REPORT INFORMATION
  Report Type: 
  Country: None (occurrence: None)
  Receive Date: 20120531
  Receipt Date: 20120529
  Transmission Date: 20120825
  Serious: Yes (Life-Threatening, Other)
  Sender: FDA-Public Use
  Company Number: US-JNJFOC-20120520609

PATIENT
  Age: 71 Year
  Sex: Male

DRUGS (4)
  1. PHENERGAN [Concomitant]
     Route: 065
  2. LISINOPRIL [Concomitant]
     Route: 048
  3. KEFLEX [Concomitant]
     Route: 065
  4. NUCYNTA [Suspect]
     Indication: ANALGESIC THERAPY
     Route: 048
     Dates: start: 20120101, end: 20120101

REACTIONS (1)
  - ANAPHYLACTIC REACTION [None]
